FAERS Safety Report 6412523-4 (Version None)
Quarter: 2009Q4

REPORT INFORMATION
  Report Type: 
  Country: None (occurrence: None)
  Receive Date: 20091023
  Receipt Date: 20090702
  Transmission Date: 20100525
  Serious: No
  Sender: FDA-Public Use
  Company Number: US-BRISTOL-MYERS SQUIBB COMPANY-14681613

PATIENT
  Age: 54 Year
  Sex: Female

DRUGS (1)
  1. KENALOG-40 [Suspect]
     Indication: MENISCUS REMOVAL
     Route: 042
     Dates: start: 20090626

REACTIONS (2)
  - MEDICATION ERROR [None]
  - NO ADVERSE EVENT [None]
